FAERS Safety Report 8713571 (Version 6)
Quarter: 2013Q3

REPORT INFORMATION
  Report Type: Report from Study
  Country: US (occurrence: US)
  Receive Date: 20120808
  Receipt Date: 20130920
  Transmission Date: 20140515
  Serious: Yes (Death, Life-Threatening, Hospitalization, Other)
  Sender: FDA-Public Use
  Company Number: US-ACTELION-A-US2012-69586

PATIENT
  Age: 70 Year
  Sex: Male

DRUGS (4)
  1. TRACLEER [Suspect]
     Indication: PORTOPULMONARY HYPERTENSION
     Dosage: UNK
     Route: 048
  2. GENTAMYCIN [Suspect]
  3. PRADAXA [Concomitant]
  4. SILDENAFIL [Concomitant]
     Indication: PULMONARY ARTERIAL HYPERTENSION

REACTIONS (11)
  - Sepsis [Fatal]
  - Septic shock [Recovering/Resolving]
  - Bacteraemia [Unknown]
  - Chronic obstructive pulmonary disease [Recovering/Resolving]
  - Tracheostomy [Recovering/Resolving]
  - Cardiac disorder [Unknown]
  - Atrial fibrillation [Recovering/Resolving]
  - Hepatic cirrhosis [Recovering/Resolving]
  - Respiratory failure [Unknown]
  - Renal failure [Recovering/Resolving]
  - Dialysis [Recovering/Resolving]
